FAERS Safety Report 5509269-3 (Version None)
Quarter: 2007Q4

REPORT INFORMATION
  Report Type: 
  Country: None (occurrence: None)
  Receive Date: 20071107
  Receipt Date: 20071106
  Transmission Date: 20080405
  Serious: No
  Sender: FDA-Public Use
  Company Number: US-BOEHRINGER INGELHEIM PHARMACEUTICALS, INC.-2007-BP-22325BP

PATIENT
  Age: 50 Year
  Sex: Female
  Weight: 79 kg

DRUGS (6)
  1. MICARDIS [Suspect]
     Indication: HYPERTENSION
     Route: 048
     Dates: start: 20010101
  2. DEPO-PROVERA [Concomitant]
  3. CYMBALTA [Concomitant]
  4. AMBIEN [Concomitant]
  5. ALLEGRA [Concomitant]
  6. LUPRON [Concomitant]

REACTIONS (8)
  - AGITATION [None]
  - CONVULSION [None]
  - DIZZINESS [None]
  - HEARING DISABILITY [None]
  - HYPOAESTHESIA [None]
  - MEMORY IMPAIRMENT [None]
  - MIGRAINE [None]
  - PALPITATIONS [None]
